FAERS Safety Report 12834230 (Version 2)
Quarter: 2016Q4

REPORT INFORMATION
  Report Type: Spontaneous
  Country: US (occurrence: US)
  Receive Date: 20161010
  Receipt Date: 20161107
  Transmission Date: 20170207
  Serious: Yes (Hospitalization, Other)
  Sender: FDA-Public Use
  Company Number: US-SMITH AND NEPHEW, INC-2016SMT00870

PATIENT
  Age: 53 Year
  Sex: Female
  Weight: 96.15 kg

DRUGS (6)
  1. AMLODIPINE [Concomitant]
     Active Substance: AMLODIPINE BESYLATE
  2. UNSPECIFIED INSULIN PRODUCT [Concomitant]
     Dosage: UNK
     Dates: start: 2016
  3. REGRANEX [Suspect]
     Active Substance: BECAPLERMIN
     Indication: ULCER
     Dosage: UNK UNK, 1X/DAY
     Route: 061
     Dates: start: 201609, end: 20160922
  4. EPOGEN [Concomitant]
     Active Substance: ERYTHROPOIETIN
     Dosage: UNK, 2X/MONTH
  5. CLONIDINE. [Concomitant]
     Active Substance: CLONIDINE
  6. ASPIRIN. [Concomitant]
     Active Substance: ASPIRIN

REACTIONS (11)
  - Peripheral arterial occlusive disease [None]
  - Arthropathy [Unknown]
  - Pain [Recovering/Resolving]
  - Cellulitis [Recovering/Resolving]
  - Fungal infection [Unknown]
  - Candida infection [Unknown]
  - Acute kidney injury [Unknown]
  - Neuropathy peripheral [Unknown]
  - Osteomyelitis [Recovering/Resolving]
  - Anaemia [Recovered/Resolved]
  - Foot deformity [Unknown]

NARRATIVE: CASE EVENT DATE: 201609
